FAERS Safety Report 23585770 (Version 2)
Quarter: 2024Q1

REPORT INFORMATION
  Report Type: Spontaneous
  Country: NL (occurrence: None)
  Receive Date: 20240301
  Receipt Date: 20240329
  Transmission Date: 20240410
  Serious: Yes (Life-Threatening)
  Sender: FDA-Public Use
  Company Number: 2024A048301

PATIENT
  Age: 57 Year
  Sex: Male

DRUGS (7)
  1. DAPAGLIFLOZIN [Suspect]
     Active Substance: DAPAGLIFLOZIN
     Indication: Cardiac failure
     Dosage: TABLET, 10 MG (MILLIGRAM)
     Dates: start: 20240112
  2. CODEINE [Concomitant]
     Active Substance: CODEINE
     Dosage: TABLET, 10 MG (MILLIGRAM)
  3. PERINDOPRIL ERBUMINE [Concomitant]
     Active Substance: PERINDOPRIL ERBUMINE
     Dosage: TABLET, 4 MG (MILLIGRAM)
  4. SPIRONOLACTONE [Concomitant]
     Active Substance: SPIRONOLACTONE
     Dosage: TABLET, 12,5 MG (MILLIGRAM)
  5. FUROSEMIDE [Concomitant]
     Active Substance: FUROSEMIDE
     Dosage: TABLET, 20 MG (MILLIGRAM)
  6. ATENOLOL [Concomitant]
     Active Substance: ATENOLOL
     Dosage: TABLET, 100 MG (MILLIGRAM)
  7. CAD 500/880 ORANGE, BRUISGRANULAAT [Concomitant]
     Dosage: SACHET (EFFERVESCENT GRANULES), 1.25 G (GRAM)/880 UNITS

REACTIONS (2)
  - Ventricular fibrillation [Recovering/Resolving]
  - Cardiac arrest [Recovering/Resolving]
